FAERS Safety Report 9312569 (Version 1)
Quarter: 2013Q2

REPORT INFORMATION
  Report Type: Spontaneous
  Country: US (occurrence: US)
  Receive Date: 20130528
  Receipt Date: 20130528
  Transmission Date: 20140414
  Serious: Yes (Hospitalization)
  Sender: FDA-Public Use
  Company Number: US-GLAXOSMITHKLINE-A0789305A

PATIENT
  Age: 54 Year
  Sex: Female

DRUGS (2)
  1. AVANDAMET [Suspect]
     Indication: DIABETES MELLITUS
     Dosage: 1TAB TWICE PER DAY
     Dates: start: 20061003, end: 200706
  2. AVANDIA [Suspect]
     Indication: DIABETES MELLITUS
     Dosage: 8MG PER DAY
     Route: 048
     Dates: start: 20040913, end: 20061003

REACTIONS (5)
  - Cerebrovascular accident [Not Recovered/Not Resolved]
  - Pain [Unknown]
  - Hemiparesis [Unknown]
  - Abasia [Unknown]
  - Amnesia [Unknown]
